FAERS Safety Report 15751519 (Version 1)
Quarter: 2018Q4

REPORT INFORMATION
  Report Type: Spontaneous
  Country: US (occurrence: US)
  Receive Date: 20181221
  Receipt Date: 20181221
  Transmission Date: 20190205
  Serious: Yes (Other)
  Sender: FDA-Public Use
  Company Number: US-009507513-1812USA007615

PATIENT
  Age: 83 Year
  Sex: Male

DRUGS (2)
  1. PRINIVIL [Suspect]
     Active Substance: LISINOPRIL
     Indication: BLOOD PRESSURE ABNORMAL
     Dosage: UNK
     Route: 065
  2. RANOLAZINE HYDROCHLORIDE [Suspect]
     Active Substance: RANOLAZINE HYDROCHLORIDE
     Indication: ANGINA PECTORIS
     Dosage: 1000 MILLIGRAM, BID
     Route: 048
     Dates: start: 20170822

REACTIONS (3)
  - Asthenia [Unknown]
  - Fall [Unknown]
  - Hip fracture [Unknown]
